FAERS Safety Report 7451894-7 (Version None)
Quarter: 2011Q2

REPORT INFORMATION
  Report Type: 
  Country: None (occurrence: None)
  Receive Date: 20110422
  Receipt Date: 20110214
  Transmission Date: 20111010
  Serious: Yes (Hospitalization)
  Sender: FDA-Public Use
  Company Number: CIO11007239

PATIENT
  Sex: Female

DRUGS (3)
  1. PENTAZOCINE HYDROCHLORIDE (PENTAZOCINE HYDROCHLORIDE) [Suspect]
     Indication: DRUG ABUSE
     Dosage: IV BOLUS
     Route: 040
  2. TRIPELENNAMINE HCL [Suspect]
     Indication: DRUG ABUSE
     Dosage: IV BOLUS
     Route: 040
  3. VICKS VAPOR INHALER (BORNYL ACETATE .21 MG, CAMPHOR 57.97 MG, LEVMETAM [Suspect]
     Indication: DRUG ABUSE
     Dosage: IV BOLUS
     Route: 040

REACTIONS (13)
  - HEADACHE [None]
  - WHITE BLOOD CELL COUNT INCREASED [None]
  - CONJUNCTIVAL HAEMORRHAGE [None]
  - DRUG ABUSE [None]
  - ARTHRALGIA [None]
  - PHOTOPHOBIA [None]
  - FEELING HOT [None]
  - PLEURITIC PAIN [None]
  - EYE IRRITATION [None]
  - CHILLS [None]
  - LACRIMATION INCREASED [None]
  - EYE PAIN [None]
  - EAR PAIN [None]
